FAERS Safety Report 4565677-9 (Version None)
Quarter: 2005Q1

REPORT INFORMATION
  Report Type: 
  Country: None (occurrence: None)
  Receive Date: 20050126
  Receipt Date: 20050113
  Transmission Date: 20050727
  Serious: Yes (Hospitalization, Other)
  Sender: FDA-Public Use
  Company Number: 2005013770

PATIENT
  Sex: Male
  Weight: 110.2241 kg

DRUGS (5)
  1. NEURONTIN [Suspect]
     Indication: ILL-DEFINED DISORDER
     Dosage: 300 MG (300 MG 1 IN 1 D) ORAL
     Route: 048
     Dates: start: 20021001
  2. QUETIAPINE FUMARATE(QUETIAPINE FUMARATE) [Concomitant]
  3. TRAZODONE (TRAZODONE) [Concomitant]
  4. VICODIN [Concomitant]
  5. ALPRAZOLAM [Concomitant]

REACTIONS (11)
  - ABASIA [None]
  - BLOOD GLUCOSE INCREASED [None]
  - COLONIC OBSTRUCTION [None]
  - DIABETES MELLITUS [None]
  - DIABETES MELLITUS INADEQUATE CONTROL [None]
  - DIABETIC COMA [None]
  - DRUG SCREEN POSITIVE [None]
  - GASTRIC DISORDER [None]
  - HEPATITIS A [None]
  - HEPATITIS C [None]
  - LOSS OF CONSCIOUSNESS [None]
